FAERS Safety Report 13432132 (Version 2)
Quarter: 2017Q3

REPORT INFORMATION
  Report Type: Spontaneous
  Country: US (occurrence: US)
  Receive Date: 20170412
  Receipt Date: 20170707
  Transmission Date: 20171127
  Serious: Yes (Hospitalization, Other)
  Sender: FDA-Public Use
  Company Number: US-JNJFOC-20170319651

PATIENT
  Age: 42 Year
  Sex: Male
  Weight: 74 kg

DRUGS (2)
  1. XARELTO [Suspect]
     Active Substance: RIVAROXABAN
     Indication: THROMBOSIS PROPHYLAXIS
     Dosage: DOSE: 15MG AND 20MG
     Route: 048
     Dates: start: 201504, end: 201610
  2. XARELTO [Suspect]
     Active Substance: RIVAROXABAN
     Indication: THROMBOSIS PROPHYLAXIS
     Dosage: DOSE: 15MG AND 20MG
     Route: 048
     Dates: start: 201504, end: 201610

REACTIONS (2)
  - Renal haemorrhage [Unknown]
  - Gastrointestinal haemorrhage [Recovering/Resolving]

NARRATIVE: CASE EVENT DATE: 20160411
